FAERS Safety Report 8591932-1 (Version None)
Quarter: 2012Q3

REPORT INFORMATION
  Report Type: 
  Country: None (occurrence: None)
  Receive Date: 20120814
  Receipt Date: 20120810
  Transmission Date: 20120928
  Serious: Yes (Hospitalization)
  Sender: FDA-Public Use
  Company Number: US-PFIZER INC-2012195809

PATIENT
  Age: 79 Year
  Sex: Female
  Weight: 49 kg

DRUGS (7)
  1. LIPITOR [Concomitant]
     Indication: BLOOD CHOLESTEROL INCREASED
     Dosage: 20 MG, 5X/WEEK
  2. ATENOLOL [Concomitant]
     Indication: PULSE ABNORMAL
     Dosage: UNK, DAILY
  3. FOSAMAX [Concomitant]
     Indication: BONE DISORDER
     Dosage: 70 MG, DAILY
  4. NEXIUM [Concomitant]
     Indication: HYPERCHLORHYDRIA
     Dosage: 40 MG, DAILY
  5. SUTENT [Suspect]
     Indication: RENAL CANCER METASTATIC
     Dosage: 25 MG, DAILY
     Route: 048
     Dates: start: 20120701
  6. DILTIAZEM HYDROCHLORIDE [Concomitant]
     Indication: HYPERTENSION
     Dosage: 240 MG, DAILY
  7. LISINOPRIL AND HYDROCHLOROTHIAZIDE [Concomitant]
     Indication: HYPERTENSION
     Dosage: 20/25 MG, DAILY

REACTIONS (2)
  - INCORRECT STORAGE OF DRUG [None]
  - VIRAL INFECTION [None]
